FAERS Safety Report 4365831-5 (Version None)
Quarter: 2004Q2

REPORT INFORMATION
  Report Type: 
  Country: None (occurrence: None)
  Receive Date: 20040520
  Receipt Date: 20040511
  Transmission Date: 20050107
  Serious: Yes (Hospitalization)
  Sender: FDA-Public Use
  Company Number: FR-JNJFOC-20040502597

PATIENT
  Age: 84 Year
  Sex: Female

DRUGS (8)
  1. TRAMADOL HCL [Suspect]
     Indication: ABDOMINAL PAIN
     Dosage: 100 MG, 2 IN 1 DAY, ORAL
     Route: 048
     Dates: start: 20040316, end: 20040318
  2. ACETAMINOPHEN [Suspect]
     Indication: ABDOMINAL PAIN
     Dosage: ORAL
     Route: 048
     Dates: start: 20040312, end: 20040318
  3. TENORMIN [Concomitant]
  4. ASPIRIN [Concomitant]
  5. FENOFIBRATE [Concomitant]
  6. AMLODIPINE BESYLATE [Concomitant]
  7. HYPERIUM (RILMENIDINE) [Concomitant]
  8. NISIS (VALSARTAN) [Concomitant]

REACTIONS (12)
  - ABDOMINAL PAIN [None]
  - BILIRUBIN CONJUGATED INCREASED [None]
  - BLOOD ALKALINE PHOSPHATASE INCREASED [None]
  - BLOOD BILIRUBIN INCREASED [None]
  - BODY TEMPERATURE INCREASED [None]
  - C-REACTIVE PROTEIN INCREASED [None]
  - CONDITION AGGRAVATED [None]
  - CONSTIPATION [None]
  - DRUG INTERACTION [None]
  - DYSPNOEA EXERTIONAL [None]
  - NAUSEA [None]
  - OEDEMATOUS PANCREATITIS [None]
